FAERS Safety Report 6410144-0 (Version None)
Quarter: 2009Q4

REPORT INFORMATION
  Report Type: 
  Country: None (occurrence: None)
  Receive Date: 20091022
  Receipt Date: 20091013
  Transmission Date: 20100525
  Serious: Yes (Other)
  Sender: FDA-Public Use
  Company Number: LB-ROCHE-660368

PATIENT
  Age: 44 Year
  Sex: Female

DRUGS (2)
  1. CAPECITABINE [Suspect]
     Indication: COLON CANCER
     Dosage: THE PATIENT RECEIVED HER MOST RECENT CYCLE 6 OF THE TREATMENT REGIMEN IN SEPTEMBER 2009.
     Route: 048
     Dates: start: 20090601
  2. OXALIPLATIN [Suspect]
     Indication: COLON CANCER
     Dosage: THE PATIENT RECEIVED HER MOST RECENT CYCLE 6 OF THE TREATMENT REGIMEN IN SEPTEMBER 2009.
     Route: 041
     Dates: start: 20090601

REACTIONS (3)
  - DISEASE PROGRESSION [None]
  - MALIGNANT NEOPLASM PROGRESSION [None]
  - METASTASES TO LIVER [None]
